FAERS Safety Report 19928994 (Version 4)
Quarter: 2021Q4

REPORT INFORMATION
  Report Type: Spontaneous
  Country: US (occurrence: US)
  Receive Date: 20211007
  Receipt Date: 20211129
  Transmission Date: 20220303
  Serious: Yes (Other)
  Sender: FDA-Public Use
  Company Number: US-BAYER-2021A224844

PATIENT
  Age: 38 Year
  Sex: Male

DRUGS (5)
  1. KOGENATE FS [Suspect]
     Active Substance: ANTIHEMOPHILIC FACTOR, HUMAN RECOMBINANT
     Dosage: 3000 IU, OW
     Route: 042
  2. KOGENATE FS [Suspect]
     Active Substance: ANTIHEMOPHILIC FACTOR, HUMAN RECOMBINANT
     Dosage: 3000 IU, PRN
     Route: 042
  3. KOGENATE FS [Suspect]
     Active Substance: ANTIHEMOPHILIC FACTOR, HUMAN RECOMBINANT
     Dosage: USED A FEW DOSES FOR PULLED LOWER BACK ISSUE
     Dates: start: 202107
  4. KOGENATE FS [Suspect]
     Active Substance: ANTIHEMOPHILIC FACTOR, HUMAN RECOMBINANT
     Dosage: USED A FEW DOSES FOR LEFT MIDDLE FINGER BLEED AND RIGHT KNEE INJURY
  5. KOGENATE FS [Suspect]
     Active Substance: ANTIHEMOPHILIC FACTOR, HUMAN RECOMBINANT
     Dosage: UNK, USED A FEW DOSES PREVENTATIVELY FOR DENTAL CLEANING

REACTIONS (6)
  - Haemorrhage [None]
  - Haemarthrosis [None]
  - Muscle strain [None]
  - Joint injury [Recovered/Resolved]
  - Dental cleaning [None]
  - Contusion [None]

NARRATIVE: CASE EVENT DATE: 20210705
